FAERS Safety Report 9333871 (Version 1)
Quarter: 2013Q2

REPORT INFORMATION
  Report Type: Spontaneous
  Country: US (occurrence: US)
  Receive Date: 20130606
  Receipt Date: 20130606
  Transmission Date: 20140414
  Serious: Yes (Other)
  Sender: FDA-Public Use
  Company Number: US-AMGEN-USASP2013008908

PATIENT
  Age: 89 Year
  Sex: Female

DRUGS (4)
  1. PROLIA [Suspect]
     Indication: OSTEOPOROSIS POSTMENOPAUSAL
     Dosage: UNK
     Dates: start: 201208
  2. VITAMINS /90003601/ [Concomitant]
  3. VYTORIN [Concomitant]
     Dosage: EVERY OTHER NIGHT
  4. ALLERGY MEDICATION [Concomitant]

REACTIONS (2)
  - Back pain [Unknown]
  - Alopecia [Unknown]
